FAERS Safety Report 5708169-3 (Version None)
Quarter: 2008Q2

REPORT INFORMATION
  Report Type: 
  Country: None (occurrence: None)
  Receive Date: 20080417
  Receipt Date: 20080414
  Transmission Date: 20081010
  Serious: Yes (Other)
  Sender: FDA-Public Use
  Company Number: B0515863A

PATIENT
  Age: 1 Year
  Sex: Female

DRUGS (1)
  1. SAWACILLIN [Suspect]
     Indication: PNEUMONIA
     Dosage: 30MGK PER DAY
     Route: 048
     Dates: start: 20080324, end: 20080326

REACTIONS (2)
  - DRUG ERUPTION [None]
  - ERYTHEMA MULTIFORME [None]
